FAERS Safety Report 7472055-1 (Version None)
Quarter: 2011Q2

REPORT INFORMATION
  Report Type: 
  Country: None (occurrence: None)
  Receive Date: 20110511
  Receipt Date: 20101108
  Transmission Date: 20111010
  Serious: No
  Sender: FDA-Public Use
  Company Number: A0891320A

PATIENT

DRUGS (1)
  1. TYKERB [Suspect]
     Route: 065

REACTIONS (1)
  - ADVERSE EVENT [None]
